FAERS Safety Report 12669220 (Version 3)
Quarter: 2016Q4

REPORT INFORMATION
  Report Type: Spontaneous
  Country: US (occurrence: US)
  Receive Date: 20160819
  Receipt Date: 20161007
  Transmission Date: 20170207
  Serious: No
  Sender: FDA-Public Use
  Company Number: US-BEH-2016072470

PATIENT
  Age: 59 Year
  Sex: Male
  Weight: 81.63 kg

DRUGS (3)
  1. HIZENTRA [Suspect]
     Active Substance: HUMAN IMMUNOGLOBULIN G
     Dosage: UNK
     Route: 065
     Dates: start: 20130325
  2. HIZENTRA [Suspect]
     Active Substance: HUMAN IMMUNOGLOBULIN G
     Indication: IMMUNODEFICIENCY COMMON VARIABLE
     Dosage: 16 G, QW
     Route: 058
     Dates: start: 201307
  3. CARDIZEM [Concomitant]
     Active Substance: DILTIAZEM HYDROCHLORIDE
     Indication: RASH GENERALISED

REACTIONS (4)
  - Pruritus generalised [Recovered/Resolved]
  - Joint swelling [Recovered/Resolved]
  - Rash generalised [Recovered/Resolved]
  - Dermatitis contact [Recovered/Resolved]

NARRATIVE: CASE EVENT DATE: 20160518
